FAERS Safety Report 5290453-1 (Version None)
Quarter: 2007Q1

REPORT INFORMATION
  Report Type: 
  Country: None (occurrence: None)
  Receive Date: 20070118
  Receipt Date: 20070118
  Transmission Date: 20070707
  Serious: No
  Sender: FDA-Public Use
  Company Number: None

PATIENT

DRUGS (3)
  1. DOPAMINE HYDROCHLORIDE AND DEXTROSE 5% [Suspect]
     Dosage: INJECTABLE
  2. DOPAMINE HYDROCHLORIDE AND DEXTROSE 5% [Suspect]
     Dosage: INJECTABLE
  3. DOPAMINE HYDROCHLORIDE AND DEXTROSE 5% [Suspect]
     Dosage: INJECTABLE

REACTIONS (7)
  - BLOOD PRESSURE DECREASED [None]
  - BLOOD PRESSURE INADEQUATELY CONTROLLED [None]
  - CARDIAC ARREST [None]
  - DRUG DISPENSING ERROR [None]
  - INCORRECT DOSE ADMINISTERED [None]
  - MEDICATION ERROR [None]
  - PHARMACEUTICAL PRODUCT COMPLAINT [None]
